FAERS Safety Report 10689900 (Version 1)
Quarter: 2015Q1

REPORT INFORMATION
  Report Type: Report from Study
  Country: US (occurrence: US)
  Receive Date: 20150105
  Receipt Date: 20150105
  Transmission Date: 20150720
  Serious: Yes (Other)
  Sender: FDA-Public Use
  Company Number: PHEH2014US025968

PATIENT
  Sex: Male

DRUGS (1)
  1. GLEEVEC [Suspect]
     Active Substance: IMATINIB MESYLATE
     Indication: PRODUCT USED FOR UNKNOWN INDICATION
     Dosage: 400 MG, TAKE 3 TABLETS BY MOUTH DAILY
     Route: 048

REACTIONS (5)
  - Pain [Unknown]
  - Rash [Unknown]
  - Chronic graft versus host disease [Unknown]
  - Oral pain [Unknown]
  - Constipation [Unknown]
